FAERS Safety Report 4773147-8 (Version None)
Quarter: 2005Q3

REPORT INFORMATION
  Report Type: 
  Country: None (occurrence: None)
  Receive Date: 20050915
  Receipt Date: 20050915
  Transmission Date: 20060218
  Serious: Yes (Death, Hospitalization)
  Sender: FDA-Public Use
  Company Number: None

PATIENT
  Sex: Male
  Weight: 109 kg

DRUGS (3)
  1. 13-CIS RETINOIC ACID [Suspect]
     Indication: SMALL CELL LUNG CANCER STAGE UNSPECIFIED
     Dosage: SEE IMAGE
     Dates: start: 20050822, end: 20050830
  2. INTERFERON ALPHA 2B [Suspect]
     Dosage: SEE IMAGE
     Dates: start: 20050822, end: 20050830
  3. TAXOL [Suspect]
     Dosage: SEE IMAGE
     Dates: start: 20050823, end: 20050830

REACTIONS (4)
  - BLOOD ALKALINE PHOSPHATASE INCREASED [None]
  - DISEASE PROGRESSION [None]
  - DRUG TOXICITY [None]
  - PANCREATITIS ACUTE [None]
